FAERS Safety Report 23379519 (Version 2)
Quarter: 2024Q1

REPORT INFORMATION
  Report Type: Spontaneous
  Country: US (occurrence: US)
  Receive Date: 20240108
  Receipt Date: 20240228
  Transmission Date: 20240410
  Serious: No
  Sender: FDA-Public Use
  Company Number: US-PFIZER INC-202300457904

PATIENT
  Age: 73 Year
  Sex: Male
  Weight: 81.65 kg

DRUGS (3)
  1. PAXLOVID [Suspect]
     Active Substance: NIRMATRELVIR\RITONAVIR
     Indication: COVID-19 treatment
     Dosage: 400 MG (300/100 MG, THREE TABLETS) TWO TIMES A DAY MORNING AND EVENING FOR FIVE DAYS
     Route: 048
     Dates: start: 20231226, end: 20231229
  2. AZITHROMYCIN [Suspect]
     Active Substance: AZITHROMYCIN
     Indication: Lower respiratory tract infection
     Dosage: 500 MG, DAILY
     Route: 048
     Dates: start: 20231225, end: 20231225
  3. AZITHROMYCIN [Suspect]
     Active Substance: AZITHROMYCIN
     Dosage: 250 MG, DAILY
     Route: 048
     Dates: start: 20231226, end: 20231229

REACTIONS (2)
  - Dysgeusia [Recovered/Resolved]
  - Tinnitus [Not Recovered/Not Resolved]

NARRATIVE: CASE EVENT DATE: 20231226
